FAERS Safety Report 4278578-0 (Version None)
Quarter: 2004Q1

REPORT INFORMATION
  Report Type: 
  Country: None (occurrence: None)
  Receive Date: 20040122
  Receipt Date: 20040109
  Transmission Date: 20041129
  Serious: Yes (Other)
  Sender: FDA-Public Use
  Company Number: US012623

PATIENT
  Age: 51 Year
  Sex: Female

DRUGS (11)
  1. PROVIGIL [Suspect]
     Indication: DISTURBANCE IN ATTENTION
     Dosage: 100 MG QD ORAL
     Route: 048
     Dates: start: 20031109, end: 20031109
  2. PROVIGIL [Suspect]
     Indication: LETHARGY
     Dosage: 100 MG QD ORAL
     Route: 048
     Dates: start: 20031109, end: 20031109
  3. PROVIGIL [Suspect]
     Indication: SEDATION
     Dosage: 100 MG QD ORAL
     Route: 048
     Dates: start: 20031109, end: 20031109
  4. PROVIGIL [Suspect]
     Indication: DISTURBANCE IN ATTENTION
     Dosage: 50 MG QD ORAL
     Route: 048
     Dates: start: 20040106, end: 20040106
  5. PROVIGIL [Suspect]
     Indication: LETHARGY
     Dosage: 50 MG QD ORAL
     Route: 048
     Dates: start: 20040106, end: 20040106
  6. PROVIGIL [Suspect]
     Indication: SEDATION
     Dosage: 50 MG QD ORAL
     Route: 048
     Dates: start: 20040106, end: 20040106
  7. PROZAC [Concomitant]
  8. KLONOPIN [Concomitant]
  9. AMBIEN [Concomitant]
  10. WELLBUTRIN [Concomitant]
  11. SYNTHROID [Concomitant]

REACTIONS (8)
  - CONFUSIONAL STATE [None]
  - HEADACHE [None]
  - MENINGEAL DISORDER [None]
  - MENINGITIS BACTERIAL [None]
  - NECK PAIN [None]
  - PAIN IN EXTREMITY [None]
  - PRURITUS [None]
  - SWELLING [None]
